FAERS Safety Report 18227040 (Version 1)
Quarter: 2020Q3

REPORT INFORMATION
  Report Type: Spontaneous
  Country: IT (occurrence: IT)
  Receive Date: 20200903
  Receipt Date: 20200903
  Transmission Date: 20201103
  Serious: Yes (Hospitalization)
  Sender: FDA-Public Use
  Company Number: IT-PFIZER INC-2020339987

PATIENT
  Age: 81 Year
  Sex: Female

DRUGS (1)
  1. HALCION [Suspect]
     Active Substance: TRIAZOLAM
     Dosage: 6 DF
     Route: 048
     Dates: start: 20200818, end: 20200818

REACTIONS (3)
  - Sopor [Recovering/Resolving]
  - Accidental overdose [Recovering/Resolving]
  - Wrong product administered [Recovering/Resolving]

NARRATIVE: CASE EVENT DATE: 20200818
